FAERS Safety Report 7465975-5 (Version None)
Quarter: 2011Q2

REPORT INFORMATION
  Report Type: 
  Country: None (occurrence: None)
  Receive Date: 20110509
  Receipt Date: 20100519
  Transmission Date: 20111010
  Serious: Yes (Hospitalization)
  Sender: FDA-Public Use
  Company Number: US-ALEXION-A201000577

PATIENT
  Sex: Male

DRUGS (19)
  1. PRILOSEC [Concomitant]
     Dosage: 20 MG, BID
  2. COLACE [Concomitant]
     Dosage: 10 MG, QD
  3. DILANTIN [Concomitant]
     Dosage: 230 MG, QD
     Route: 048
  4. ATENOLOL [Concomitant]
     Dosage: 50 MG, QD
  5. SOLIRIS [Suspect]
     Dosage: 900 MG, Q2WKS
     Route: 042
  6. ISORDIL [Concomitant]
     Dosage: 5 MG, UNK
  7. SIMVASTATIN [Concomitant]
     Dosage: 80 MG, QHS
  8. VITAMIN B12                        /00056201/ [Concomitant]
  9. VALIUM [Concomitant]
     Indication: CONVULSION
     Dosage: 1 MG, QAM
     Route: 048
  10. FOLIC ACID [Concomitant]
     Dosage: 1 MG
  11. TRICOR [Concomitant]
     Dosage: 145 MG, QD
  12. HYDROCHLOROTHIAZIDE [Concomitant]
     Dosage: 25 MG, QD
  13. CALCIUM WITH VITAMIN D             /00944201/ [Concomitant]
  14. SOLIRIS [Suspect]
     Indication: PAROXYSMAL NOCTURNAL HAEMOGLOBINURIA
     Dosage: 600 MG, UNK
     Route: 042
  15. VALIUM [Concomitant]
     Dosage: 5 MG, PRN
     Route: 042
  16. NIACIN [Concomitant]
     Dosage: 250 MG, QD
  17. VALSARTAN [Concomitant]
     Dosage: 80 MG, QD
  18. LORTAB [Concomitant]
  19. KEPPRA [Concomitant]
     Dosage: 1500 MG, Q12H
     Route: 048

REACTIONS (1)
  - ANAEMIA [None]
